FAERS Safety Report 22400813 (Version 3)
Quarter: 2023Q4

REPORT INFORMATION
  Report Type: Spontaneous
  Country: PR (occurrence: PR)
  Receive Date: 20230602
  Receipt Date: 20231003
  Transmission Date: 20240110
  Serious: No
  Sender: FDA-Public Use
  Company Number: PR-PFIZER INC-202300207132

PATIENT
  Age: 74 Year
  Sex: Female
  Weight: 57.143 kg

DRUGS (8)
  1. XELJANZ [Suspect]
     Active Substance: TOFACITINIB CITRATE
     Dosage: 5 MG, 2X/DAY
     Route: 048
     Dates: start: 20211007, end: 202306
  2. HUMULIN N [Concomitant]
     Active Substance: INSULIN HUMAN
  3. MELOXICAM [Concomitant]
     Active Substance: MELOXICAM
  4. GABAPENTIN [Concomitant]
     Active Substance: GABAPENTIN
  5. AMLODIPINE [Concomitant]
     Active Substance: AMLODIPINE BESYLATE
  6. METFORMIN [Concomitant]
     Active Substance: METFORMIN HYDROCHLORIDE
     Indication: Diabetes mellitus
  7. FOLIC ACID [Concomitant]
     Active Substance: FOLIC ACID
  8. MOBIC [Concomitant]
     Active Substance: MELOXICAM
     Indication: Rheumatoid arthritis

REACTIONS (1)
  - Pruritus [Recovering/Resolving]
